FAERS Safety Report 15096081 (Version 4)
Quarter: 2018Q3

REPORT INFORMATION
  Report Type: Report from Study
  Country: US (occurrence: US)
  Receive Date: 20180702
  Receipt Date: 20180727
  Transmission Date: 20181010
  Serious: Yes (Hospitalization, Other)
  Sender: FDA-Public Use
  Company Number: US-GILEAD-2018-0344104

PATIENT
  Age: 2 Year
  Sex: Female
  Weight: 11.5 kg

DRUGS (7)
  1. LASIX [Concomitant]
     Active Substance: FUROSEMIDE
  2. REMODULIN [Concomitant]
     Active Substance: TREPROSTINIL
  3. AMBRISENTAN [Suspect]
     Active Substance: AMBRISENTAN
     Indication: PULMONARY HYPERTENSION
     Dosage: 5 MG, QD
     Route: 065
     Dates: start: 20180426
  4. AMBRISENTAN [Suspect]
     Active Substance: AMBRISENTAN
     Indication: BRONCHOPULMONARY DYSPLASIA
  5. REVATIO [Concomitant]
     Active Substance: SILDENAFIL CITRATE
  6. ADCIRCA [Concomitant]
     Active Substance: TADALAFIL
  7. OXYGEN. [Concomitant]
     Active Substance: OXYGEN

REACTIONS (12)
  - Injection site induration [Not Recovered/Not Resolved]
  - Pain in extremity [Not Recovered/Not Resolved]
  - Fatigue [Not Recovered/Not Resolved]
  - Peripheral swelling [Not Recovered/Not Resolved]
  - Injection site erythema [Not Recovered/Not Resolved]
  - Injection site pain [Not Recovered/Not Resolved]
  - Oxygen saturation decreased [Not Recovered/Not Resolved]
  - Diarrhoea [Not Recovered/Not Resolved]
  - Respiratory failure [Unknown]
  - Pulmonary hypertension [Unknown]
  - Off label use [Not Recovered/Not Resolved]
  - Crying [Not Recovered/Not Resolved]
